FAERS Safety Report 8240331-0 (Version None)
Quarter: 2012Q1

REPORT INFORMATION
  Report Type: 
  Country: None (occurrence: None)
  Receive Date: 20120328
  Receipt Date: 20120328
  Transmission Date: 20120608
  Serious: No
  Sender: FDA-Public Use
  Company Number: None

PATIENT
  Age: 55 Year
  Weight: 81.193 kg

DRUGS (1)
  1. CYMBALTA [Suspect]
     Indication: DEPRESSION
     Dosage: ONCE
     Route: 048
     Dates: start: 20080101, end: 20120301

REACTIONS (3)
  - PAIN [None]
  - QUALITY OF LIFE DECREASED [None]
  - DRUG WITHDRAWAL SYNDROME [None]
